FAERS Safety Report 5917937-4 (Version None)
Quarter: 2008Q4

REPORT INFORMATION
  Report Type: 
  Country: None (occurrence: None)
  Receive Date: 20081014
  Receipt Date: 20081002
  Transmission Date: 20090506
  Serious: Yes (Other)
  Sender: FDA-Public Use
  Company Number: US-PFIZER INC-2008083017

PATIENT
  Sex: Male

DRUGS (3)
  1. DILANTIN [Suspect]
  2. PHENOBARBITAL [Concomitant]
  3. CALCITRIOL [Concomitant]

REACTIONS (5)
  - ANTICONVULSANT DRUG LEVEL DECREASED [None]
  - FALL [None]
  - HAEMORRHAGE [None]
  - PETIT MAL EPILEPSY [None]
  - WOUND [None]
